FAERS Safety Report 9019054 (Version 3)
Quarter: 2013Q4

REPORT INFORMATION
  Report Type: Report from Study
  Country: US (occurrence: US)
  Receive Date: 20130118
  Receipt Date: 20131001
  Transmission Date: 20140711
  Serious: Yes (Hospitalization, Disabling)
  Sender: FDA-Public Use
  Company Number: US-JNJFOC-20130108439

PATIENT
  Age: 13 Year
  Sex: Female
  Weight: 72.3 kg

DRUGS (8)
  1. REMICADE [Suspect]
     Indication: CROHN^S DISEASE
     Route: 042
     Dates: end: 201211
  2. REMICADE [Suspect]
     Indication: CROHN^S DISEASE
     Route: 042
     Dates: start: 20120829
  3. REMICADE [Suspect]
     Indication: CROHN^S DISEASE
     Route: 042
     Dates: start: 20110418
  4. AMITRIPTYLINE [Concomitant]
  5. OMEPRAZOLE [Concomitant]
  6. PREDNISONE [Concomitant]
  7. PRENATAL VITAMIN [Concomitant]
  8. TYSABRI [Concomitant]
     Route: 065
     Dates: end: 20130917

REACTIONS (1)
  - Crohn^s disease [Recovered/Resolved]
